FAERS Safety Report 8394631-4 (Version None)
Quarter: 2012Q2

REPORT INFORMATION
  Report Type: 
  Country: None (occurrence: None)
  Receive Date: 20120525
  Receipt Date: 20120525
  Transmission Date: 20120825
  Serious: Yes (Hospitalization)
  Sender: FDA-Public Use
  Company Number: None

PATIENT
  Age: 60 Year
  Sex: Male
  Weight: 62.3 kg

DRUGS (1)
  1. TELAPREVIR 375 MG VERTEX PHARMACEUTICALS [Suspect]
     Indication: HEPATITIS C
     Dosage: 375 MG EVERY 8 HOURS PO
     Route: 048
     Dates: start: 20111019, end: 20120104

REACTIONS (3)
  - RASH MACULAR [None]
  - EXCORIATION [None]
  - RASH GENERALISED [None]
